FAERS Safety Report 23469405 (Version 4)
Quarter: 2024Q1

REPORT INFORMATION
  Report Type: Spontaneous
  Country: US (occurrence: US)
  Receive Date: 20240202
  Receipt Date: 20240305
  Transmission Date: 20240409
  Serious: No
  Sender: FDA-Public Use
  Company Number: US-JNJFOC-20240181448

PATIENT
  Age: 21 Year
  Sex: Female

DRUGS (6)
  1. VELETRI [Suspect]
     Active Substance: EPOPROSTENOL
     Indication: Product used for unknown indication
     Dosage: 50 NG QD
     Route: 042
     Dates: start: 202305
  2. VELETRI [Suspect]
     Active Substance: EPOPROSTENOL
     Dosage: 50 MG CYCLICAL
     Route: 042
     Dates: start: 202310
  3. AMBRISENTAN [Suspect]
     Active Substance: AMBRISENTAN
     Indication: Pulmonary arterial hypertension
     Route: 065
     Dates: start: 201911
  4. ADEMPAS [Suspect]
     Active Substance: RIOCIGUAT
     Indication: Pulmonary arterial hypertension
     Route: 065
     Dates: start: 202401
  5. ADEMPAS [Suspect]
     Active Substance: RIOCIGUAT
     Route: 065
  6. ADCIRCA [Concomitant]
     Active Substance: TADALAFIL
     Dates: start: 202103

REACTIONS (4)
  - Oedema peripheral [Unknown]
  - Joint swelling [Unknown]
  - Epistaxis [Unknown]
  - Seasonal allergy [Not Recovered/Not Resolved]
